FAERS Safety Report 10602877 (Version 1)
Quarter: 2014Q4

REPORT INFORMATION
  Report Type: Spontaneous
  Country: GB (occurrence: GB)
  Receive Date: 20141124
  Receipt Date: 20141124
  Transmission Date: 20150529
  Serious: Yes (Hospitalization, Other)
  Sender: FDA-Public Use
  Company Number: GB-TEVA-522778ISR

PATIENT
  Age: 92 Year
  Sex: Female

DRUGS (3)
  1. ANTIBIOTICS [Concomitant]
     Active Substance: UNSPECIFIED INGREDIENT
     Indication: URINARY TRACT INFECTION
     Dosage: STARTED 4 DAYS PRIOR TO ADMISSION.
  2. FUROSEMIDE. [Suspect]
     Active Substance: FUROSEMIDE
     Indication: CARDIAC FAILURE
     Dosage: TAKEN IN THE MORNING.
     Route: 048
     Dates: end: 20121228
  3. SPIRONOLACTONE. [Suspect]
     Active Substance: SPIRONOLACTONE
     Indication: CARDIAC FAILURE
     Dosage: 12.5 MILLIGRAM DAILY; TAKEN IN THE MORNING.
     Route: 048
     Dates: end: 20111228

REACTIONS (5)
  - Acute kidney injury [Recovered/Resolved]
  - Suprapubic pain [Unknown]
  - Coma scale abnormal [Unknown]
  - Confusional state [Unknown]
  - Lower respiratory tract infection [Unknown]

NARRATIVE: CASE EVENT DATE: 20121228
